FAERS Safety Report 24056157 (Version 1)
Quarter: 2024Q3

REPORT INFORMATION
  Report Type: Spontaneous
  Country: US (occurrence: US)
  Receive Date: 20240705
  Receipt Date: 20240705
  Transmission Date: 20241017
  Serious: No
  Sender: SANOFI AVENTIS
  Company Number: US-SA-SAC20240701000468

PATIENT
  Sex: Female
  Weight: 123.3 kg

DRUGS (29)
  1. DUPIXENT [Suspect]
     Active Substance: DUPILUMAB
     Indication: Dermatitis atopic
     Dosage: 300 MG, QOW
     Route: 058
     Dates: start: 202207
  2. CIBINQO [Concomitant]
     Active Substance: ABROCITINIB
  3. BENZOYL PEROXIDE\CLINDAMYCIN [Concomitant]
     Active Substance: BENZOYL PEROXIDE\CLINDAMYCIN
  4. KETOCONAZOLE [Concomitant]
     Active Substance: KETOCONAZOLE
  5. VITAMINS [Concomitant]
     Active Substance: VITAMINS
  6. VENLAFAXINE HYDROCHLORIDE [Concomitant]
     Active Substance: VENLAFAXINE HYDROCHLORIDE
  7. KRILL OIL [Concomitant]
     Active Substance: DIETARY SUPPLEMENT\KRILL OIL
  8. MOUNJARO [Concomitant]
     Active Substance: TIRZEPATIDE
     Dosage: MOUNJARO 12.5MG/0.5 PEN INJCTR
  9. IRON [Concomitant]
     Active Substance: IRON
  10. VITAMIN C [Concomitant]
     Active Substance: ASCORBIC ACID
  11. OZEMPIC [Concomitant]
     Active Substance: SEMAGLUTIDE
     Dosage: OZEMPIC 2MG/0.75ML PEN INJCTR
  12. L-METHYLFOLATE CALCIUM [Concomitant]
     Active Substance: LEVOMEFOLATE CALCIUM
  13. PROGESTERONE [Concomitant]
     Active Substance: PROGESTERONE
  14. METOPROLOL SUCCINATE [Concomitant]
     Active Substance: METOPROLOL SUCCINATE
  15. BUSPIRONE HCL [Concomitant]
     Active Substance: BUSPIRONE HYDROCHLORIDE
  16. SPIRIVA RESPIMAT [Concomitant]
     Active Substance: TIOTROPIUM BROMIDE
  17. NYSTATIN [Concomitant]
     Active Substance: NYSTATIN
  18. TRIAMCINOLONE ACETONIDE [Concomitant]
     Active Substance: TRIAMCINOLONE ACETONIDE
  19. ALBUTEROL SULFATE [Concomitant]
     Active Substance: ALBUTEROL SULFATE
  20. ELETRIPTAN HYDROBROMIDE [Concomitant]
     Active Substance: ELETRIPTAN HYDROBROMIDE
  21. DICYCLOMINE HYDROCHLORIDE [Concomitant]
     Active Substance: DICYCLOMINE HYDROCHLORIDE
  22. EPINEPHRINE [Concomitant]
     Active Substance: EPINEPHRINE
     Dosage: EPINEPHRINE 0.3MG/0.3 AUTO INJCT
  23. VITAMIN D4 [Concomitant]
  24. ESCITALOPRAM OXALATE [Concomitant]
     Active Substance: ESCITALOPRAM OXALATE
  25. DEXILANT [Concomitant]
     Active Substance: DEXLANSOPRAZOLE
  26. LEVOXYL [Concomitant]
     Active Substance: LEVOTHYROXINE SODIUM
  27. FLUOXETINE HYDROCHLORIDE [Concomitant]
     Active Substance: FLUOXETINE HYDROCHLORIDE
  28. COLESEVELAM HYDROCHLORIDE [Concomitant]
     Active Substance: COLESEVELAM HYDROCHLORIDE
  29. LACTASE [Concomitant]
     Active Substance: LACTASE

REACTIONS (1)
  - Drug ineffective [Unknown]
